FAERS Safety Report 4427287-3 (Version None)
Quarter: 2004Q3

REPORT INFORMATION
  Report Type: 
  Country: None (occurrence: None)
  Receive Date: 20040817
  Receipt Date: 20040727
  Transmission Date: 20050211
  Serious: Yes (Other)
  Sender: FDA-Public Use
  Company Number: 200417369GDDC

PATIENT
  Age: 48 Year
  Sex: Female

DRUGS (1)
  1. METRONIDAZOLE [Suspect]
     Dosage: DOSE: UNK

REACTIONS (4)
  - MYALGIA [None]
  - PALPITATIONS [None]
  - PANIC ATTACK [None]
  - WEIGHT DECREASED [None]
